FAERS Safety Report 5058989-6 (Version None)
Quarter: 2006Q3

REPORT INFORMATION
  Report Type: 
  Country: None (occurrence: None)
  Receive Date: 20060719
  Receipt Date: 20060703
  Transmission Date: 20061208
  Serious: Yes (Other)
  Sender: FDA-Public Use
  Company Number: TRP_0807_2006

PATIENT
  Age: 51 Year
  Sex: Female

DRUGS (8)
  1. RIBASPHERE [Suspect]
     Indication: HEPATITIS C
     Dosage: DF PO
     Route: 048
     Dates: start: 20060615
  2. PEG-INTRON [Suspect]
     Indication: HEPATITIS C
     Dosage: DF SC
     Route: 058
     Dates: start: 20060615
  3. CALCIUM CARBONATE [Concomitant]
  4. CALCIUM WITH VITAMIN D [Concomitant]
  5. ESTERIFIED ESTROGENS [Concomitant]
  6. FLUOXETINE HYDROCHLORIDE [Concomitant]
  7. LEVOTHYROXINE SODIUM [Concomitant]
  8. MEDROXYPROGESTERONE ACETATE [Concomitant]

REACTIONS (5)
  - CHILLS [None]
  - EATING DISORDER [None]
  - MENTAL STATUS CHANGES [None]
  - NAUSEA [None]
  - PYREXIA [None]
